FAERS Safety Report 5604262-4 (Version None)
Quarter: 2008Q1

REPORT INFORMATION
  Report Type: 
  Country: None (occurrence: None)
  Receive Date: 20080128
  Receipt Date: 20080115
  Transmission Date: 20080703
  Serious: Yes (Hospitalization)
  Sender: FDA-Public Use
  Company Number: US-ELI_LILLY_AND_COMPANY-US200706006062

PATIENT
  Sex: Female
  Weight: 108.84 kg

DRUGS (10)
  1. BYETTA [Suspect]
     Dosage: 5 UG, 2/D
     Route: 058
     Dates: start: 20050401, end: 20051101
  2. BYETTA [Suspect]
     Dosage: 10 UG, 2/D
     Route: 058
     Dates: start: 20051101, end: 20070526
  3. BYETTA [Suspect]
     Dosage: 5 UG, 2/D
     Route: 058
  4. BYETTA [Suspect]
     Dosage: 10 UG, 2/D
     Route: 058
     Dates: start: 20070701, end: 20071201
  5. BYETTA [Suspect]
     Dosage: 5 UG, 2/D
     Route: 058
     Dates: start: 20071214
  6. METFORMIN HCL [Concomitant]
     Indication: DIABETES MELLITUS
     Dosage: 1000 MG, 2/D
     Route: 048
     Dates: start: 20030101
  7. AMARYL [Concomitant]
     Indication: DIABETES MELLITUS
     Dosage: 4 MG, 2/D
     Route: 048
     Dates: start: 20050101
  8. AMARYL [Concomitant]
     Dosage: 2 MG, 2/D
     Route: 048
  9. INSULIN [Concomitant]
     Dosage: UNK, UNKNOWN
  10. ANTIBIOTICS [Concomitant]
     Indication: PNEUMONIA
     Dosage: UNK, UNKNOWN
     Route: 042
     Dates: start: 20070101, end: 20070101

REACTIONS (10)
  - BACK PAIN [None]
  - BLOOD GLUCOSE ABNORMAL [None]
  - BLOOD GLUCOSE DECREASED [None]
  - GASTROOESOPHAGEAL REFLUX DISEASE [None]
  - INJECTION SITE PAIN [None]
  - NAUSEA [None]
  - PNEUMONIA ASPIRATION [None]
  - PYREXIA [None]
  - TREMOR [None]
  - VOMITING [None]
